FAERS Safety Report 19008792 (Version 1)
Quarter: 2021Q1

REPORT INFORMATION
  Report Type: Report from Study
  Country: IT (occurrence: IT)
  Receive Date: 20210316
  Receipt Date: 20210316
  Transmission Date: 20210420
  Serious: Yes (Other)
  Sender: FDA-Public Use
  Company Number: IT-SUN PHARMACEUTICAL INDUSTRIES LTD-2021R1-285905

PATIENT
  Age: 16 Year
  Sex: Female

DRUGS (3)
  1. PROPOFOL. [Suspect]
     Active Substance: PROPOFOL
     Indication: DYSTONIA
     Dosage: UNK
     Route: 048
  2. TETRABENAZINE. [Suspect]
     Active Substance: TETRABENAZINE
     Indication: DYSTONIA
     Dosage: UNK
     Route: 048
  3. MIDAZOLAM. [Suspect]
     Active Substance: MIDAZOLAM
     Indication: DYSTONIA
     Dosage: UNK
     Route: 048

REACTIONS (1)
  - Drug resistance [Unknown]
